FAERS Safety Report 9398288 (Version 1)
Quarter: 2013Q3

REPORT INFORMATION
  Report Type: Spontaneous
  Country: CH (occurrence: CH)
  Receive Date: 20130712
  Receipt Date: 20130712
  Transmission Date: 20140515
  Serious: Yes (Hospitalization, Other)
  Sender: FDA-Public Use
  Company Number: CH-009507513-1307CHE002888

PATIENT
  Age: 62 Year
  Sex: Male

DRUGS (6)
  1. REMERON [Suspect]
     Dosage: MAX. 1.5 G, ONCE
     Route: 048
     Dates: start: 20130319, end: 20130319
  2. QUETIAPINE FUMARATE [Suspect]
     Dosage: MAX. 3.4 G, ONCE
     Route: 048
     Dates: start: 20130319, end: 20130319
  3. QUETIAPINE FUMARATE [Suspect]
     Dosage: MAX. 100 MG, ONCE
     Route: 048
     Dates: start: 20130319, end: 20130319
  4. PREGABALIN [Suspect]
     Dosage: MAX. 2.25 G, ONCE
     Route: 048
     Dates: start: 20130319, end: 20130319
  5. DULOXETINE HYDROCHLORIDE [Suspect]
     Dosage: MAX. 1.29 G, ONCE
     Route: 048
     Dates: start: 20130319, end: 20130319
  6. LORAZEPAM [Suspect]
     Dosage: MAX. 4 G, ONCE
     Route: 048
     Dates: start: 20130319, end: 20130319

REACTIONS (7)
  - Long QT syndrome [Recovered/Resolved]
  - Tachycardia [Recovered/Resolved]
  - Suicide attempt [Recovered/Resolved]
  - Somnolence [Recovered/Resolved]
  - Urinary retention [Recovered/Resolved]
  - Blood pressure increased [Recovered/Resolved]
  - Muscle twitching [Recovered/Resolved]
